FAERS Safety Report 8492057-6 (Version None)
Quarter: 2012Q3

REPORT INFORMATION
  Report Type: 
  Country: None (occurrence: None)
  Receive Date: 20120706
  Receipt Date: 20120704
  Transmission Date: 20120928
  Serious: Yes (Other)
  Sender: FDA-Public Use
  Company Number: US-PFIZER INC-2012151091

PATIENT
  Sex: Female
  Weight: 136 kg

DRUGS (10)
  1. LAMICTAL [Concomitant]
     Indication: BIPOLAR DISORDER
     Dosage: 200 MG, DAILY
  2. SINGULAIR [Concomitant]
     Indication: ASTHMA
     Dosage: 10 MG, DAILY
  3. ACCURETIC [Suspect]
     Indication: DIURETIC THERAPY
  4. DETROL LA [Suspect]
     Indication: MICTURITION DISORDER
     Dosage: 4 MG, DAILY
  5. CYMBALTA [Concomitant]
     Indication: BIPOLAR DISORDER
     Dosage: 30 MG, 3X/DAY
  6. CELEBREX [Suspect]
     Indication: ARTHRITIS
     Dosage: 200 MG, DAILY
  7. CRESTOR [Concomitant]
     Indication: BLOOD CHOLESTEROL ABNORMAL
     Dosage: 10 MG, DAILY
  8. SEROQUEL [Concomitant]
     Indication: BIPOLAR DISORDER
     Dosage: 50 MG, DAILY
  9. ACCURETIC [Suspect]
     Indication: BLOOD PRESSURE ABNORMAL
     Dosage: 20/25, MG, DAILY
  10. VISTARIL [Suspect]
     Indication: ANXIETY
     Dosage: 25 MG, AS NEEDED

REACTIONS (1)
  - DIABETES MELLITUS [None]
